FAERS Safety Report 5209342-3 (Version None)
Quarter: 2007Q1

REPORT INFORMATION
  Report Type: 
  Country: None (occurrence: None)
  Receive Date: 20070111
  Receipt Date: 20061229
  Transmission Date: 20070707
  Serious: Yes (Congenital Anomaly)
  Sender: FDA-Public Use
  Company Number: 2006S1011140

PATIENT
  Age: 24 Month
  Sex: Male

DRUGS (1)
  1. METHOTREXATE [Suspect]
     Dosage: PO
     Route: 048

REACTIONS (15)
  - ABNORMAL BEHAVIOUR [None]
  - APPETITE DISORDER [None]
  - CEREBRAL PALSY [None]
  - DEVELOPMENTAL COORDINATION DISORDER [None]
  - DEVELOPMENTAL DELAY [None]
  - DRUG EXPOSURE DURING PREGNANCY [None]
  - GASTROINTESTINAL DISORDER [None]
  - GASTROOESOPHAGEAL REFLUX DISEASE [None]
  - LEARNING DISORDER [None]
  - MENTAL RETARDATION SEVERITY UNSPECIFIED [None]
  - MUSCLE DISORDER [None]
  - MUSCULOSKELETAL STIFFNESS [None]
  - TREATMENT NONCOMPLIANCE [None]
  - TRISOMY 18 [None]
  - WEIGHT ABNORMAL [None]
